FAERS Safety Report 22943552 (Version 2)
Quarter: 2024Q1

REPORT INFORMATION
  Report Type: Spontaneous
  Country: US (occurrence: US)
  Receive Date: 20230914
  Receipt Date: 20240305
  Transmission Date: 20240410
  Serious: No
  Sender: FDA-Public Use
  Company Number: US-MYLANLABS-2023M1096851

PATIENT
  Sex: Male

DRUGS (1)
  1. LEVOTHYROXINE SODIUM [Suspect]
     Active Substance: LEVOTHYROXINE SODIUM
     Indication: Product used for unknown indication
     Dosage: UNK
     Route: 065
     Dates: end: 202309

REACTIONS (6)
  - Nasopharyngitis [Unknown]
  - Lethargy [Unknown]
  - Alopecia [Unknown]
  - Drug intolerance [Unknown]
  - Adverse drug reaction [Unknown]
  - Product substitution issue [Unknown]
